FAERS Safety Report 25815775 (Version 1)
Quarter: 2025Q3

REPORT INFORMATION
  Report Type: Spontaneous
  Country: US (occurrence: US)
  Receive Date: 20250918
  Receipt Date: 20250918
  Transmission Date: 20251020
  Serious: Yes (Hospitalization)
  Sender: CATALYST PHARMA
  Company Number: US-CATALYSTPHARMACEUTICALPARTNERS-US-CATA-24-00664

PATIENT
  Age: 80 Year
  Sex: Female

DRUGS (3)
  1. FYCOMPA [Suspect]
     Active Substance: PERAMPANEL
     Indication: Orthostatic tremor
     Dosage: 4 MG DAILY
     Route: 048
  2. FYCOMPA [Suspect]
     Active Substance: PERAMPANEL
     Dosage: 8 MG DAILY
     Route: 048
     Dates: start: 202411, end: 202411
  3. FYCOMPA [Suspect]
     Active Substance: PERAMPANEL
     Route: 048
     Dates: start: 202411

REACTIONS (8)
  - Dysarthria [Recovered/Resolved]
  - Hypersomnia [Unknown]
  - Gait disturbance [Unknown]
  - Urinary tract infection [Unknown]
  - Belligerence [Unknown]
  - Personality change [Unknown]
  - Off label use [Unknown]
  - Drug ineffective [Unknown]

NARRATIVE: CASE EVENT DATE: 20241101
